FAERS Safety Report 18497491 (Version 1)
Quarter: 2020Q4

REPORT INFORMATION
  Report Type: Spontaneous
  Country: US (occurrence: US)
  Receive Date: 20201112
  Receipt Date: 20201112
  Transmission Date: 20210114
  Serious: Yes (Death, Other)
  Sender: FDA-Public Use
  Company Number: US-TEVA-2020-US-1847769

PATIENT
  Sex: Male

DRUGS (14)
  1. OXYCODONE AND ACETAMINOPHEN [Suspect]
     Active Substance: ACETAMINOPHEN\OXYCODONE HYDROCHLORIDE
     Route: 065
  2. PERCOCET [Suspect]
     Active Substance: ACETAMINOPHEN\OXYCODONE HYDROCHLORIDE
     Indication: INJURY
     Route: 065
     Dates: start: 20091223
  3. PERCOCET [Suspect]
     Active Substance: ACETAMINOPHEN\OXYCODONE HYDROCHLORIDE
     Route: 065
     Dates: start: 20110702
  4. DILAUDID [Suspect]
     Active Substance: HYDROMORPHONE HYDROCHLORIDE
     Indication: INJURY
     Route: 065
     Dates: start: 20120417
  5. DILAUDID [Suspect]
     Active Substance: HYDROMORPHONE HYDROCHLORIDE
     Indication: PAIN MANAGEMENT
     Route: 065
     Dates: start: 20120912
  6. OXYCONTIN [Suspect]
     Active Substance: OXYCODONE HYDROCHLORIDE
     Indication: INJURY
     Route: 065
  7. OXYIR [Suspect]
     Active Substance: OXYCODONE HYDROCHLORIDE
     Route: 065
  8. OXYCODONE EXTENDED RELEASE TABLETS [Suspect]
     Active Substance: OXYCODONE
     Indication: INJURY
     Route: 065
  9. FENTANYL. [Suspect]
     Active Substance: FENTANYL
     Indication: INJURY
     Route: 065
  10. MORPHINE [Suspect]
     Active Substance: MORPHINE
     Route: 065
  11. PERCOCET [Suspect]
     Active Substance: ACETAMINOPHEN\OXYCODONE HYDROCHLORIDE
     Route: 065
     Dates: start: 20111014
  12. XANAX [Suspect]
     Active Substance: ALPRAZOLAM
     Route: 065
  13. METHADONE [Suspect]
     Active Substance: METHADONE HYDROCHLORIDE
     Route: 065
  14. OXYCONDONE IMMEDIATE RELEASE [Suspect]
     Active Substance: OXYCODONE
     Indication: INJURY
     Route: 065

REACTIONS (2)
  - Death [Fatal]
  - Drug dependence [Unknown]
